FAERS Safety Report 16941046 (Version 1)
Quarter: 2019Q4

REPORT INFORMATION
  Report Type: Spontaneous
  Country: US (occurrence: US)
  Receive Date: 20191019
  Receipt Date: 20191019
  Transmission Date: 20200122
  Serious: Yes (Other)
  Sender: FDA-Public Use
  Company Number: None

PATIENT
  Age: 86 Year
  Sex: Female
  Weight: 56.7 kg

DRUGS (15)
  1. TRINTELLIX [Concomitant]
     Active Substance: VORTIOXETINE HYDROBROMIDE
  2. BENICART/HCT [Concomitant]
  3. ASPIRIN. [Concomitant]
     Active Substance: ASPIRIN
  4. LEVOFLOXACIN. [Suspect]
     Active Substance: LEVOFLOXACIN
     Indication: BRONCHIECTASIS
     Dosage: ?          QUANTITY:5 TABLET(S);?
     Route: 048
     Dates: start: 20190924, end: 20190929
  5. BUPROPION HCL [Concomitant]
     Active Substance: BUPROPION HYDROCHLORIDE
  6. FIBERCON [Concomitant]
     Active Substance: CALCIUM POLYCARBOPHIL
  7. SIMVASTATIN. [Concomitant]
     Active Substance: SIMVASTATIN
  8. PRESERVATION [Concomitant]
  9. MADRODANTIN [Concomitant]
  10. TEMAZEPAM. [Concomitant]
     Active Substance: TEMAZEPAM
  11. MAGNESIUM [Concomitant]
     Active Substance: MAGNESIUM
  12. AMIODARONE [Concomitant]
     Active Substance: AMIODARONE
  13. VITAMIN B6 [Concomitant]
     Active Substance: PYRIDOXINE HYDROCHLORIDE
  14. VITAMIN B12 [Concomitant]
     Active Substance: CYANOCOBALAMIN
  15. FOLIC ACID. [Concomitant]
     Active Substance: FOLIC ACID

REACTIONS (5)
  - Confusional state [None]
  - Visual impairment [None]
  - Tremor [None]
  - Anxiety [None]
  - Amnesia [None]

NARRATIVE: CASE EVENT DATE: 20190927
